FAERS Safety Report 14987211 (Version 1)
Quarter: 2018Q2

REPORT INFORMATION
  Report Type: Spontaneous
  Country: DE (occurrence: DE)
  Receive Date: 20180608
  Receipt Date: 20180608
  Transmission Date: 20180711
  Serious: Yes (Hospitalization)
  Sender: FDA-Public Use
  Company Number: DE-TEVA-2018-DE-902475

PATIENT
  Age: 86 Year
  Sex: Female

DRUGS (6)
  1. BISOPROLOL [Suspect]
     Active Substance: BISOPROLOL
     Dosage: 0.5-0-0-0
     Route: 065
  2. DIGITOXIN [Concomitant]
     Active Substance: DIGITOXIN
     Dosage: 1-0-0-0
     Route: 065
  3. RIVAROXABAN [Concomitant]
     Active Substance: RIVAROXABAN
     Dosage: 0-0-1-0
     Route: 065
  4. TORASEMIDE [Suspect]
     Active Substance: TORSEMIDE
     Dosage: 1-0-0-0
     Route: 065
  5. RAMIPRIL/HYDROCHLOROTHIAZIDE [Suspect]
     Active Substance: HYDROCHLOROTHIAZIDE\RAMIPRIL
     Dosage: 5|25 MG, 0.5-0-0-0
     Route: 065
  6. RAMIPRIL. [Suspect]
     Active Substance: RAMIPRIL
     Dosage: 0-0-0-0.5
     Route: 065

REACTIONS (2)
  - Electrolyte imbalance [Unknown]
  - Abnormal loss of weight [Unknown]
